FAERS Safety Report 15057768 (Version 2)
Quarter: 2018Q2

REPORT INFORMATION
  Report Type: Spontaneous
  Country: US (occurrence: US)
  Receive Date: 20180625
  Receipt Date: 20180625
  Transmission Date: 20180711
  Serious: No
  Sender: FDA-Public Use
  Company Number: US-TEVA-2018-US-916020

PATIENT
  Age: 44 Year
  Sex: Female

DRUGS (2)
  1. CINQAIR [Suspect]
     Active Substance: RESLIZUMAB
     Indication: ASTHMA
     Route: 042
     Dates: start: 20170223, end: 20170615
  2. CINQAIR [Suspect]
     Active Substance: RESLIZUMAB
     Dosage: RESTARTED 13-FEB-2018 AFTER 6-7 MONTHS OFF
     Route: 042
     Dates: start: 20180213

REACTIONS (4)
  - Abdominal pain [Recovered/Resolved]
  - Alopecia [Unknown]
  - Oropharyngeal pain [Recovered/Resolved]
  - Nausea [Recovered/Resolved]

NARRATIVE: CASE EVENT DATE: 201803
